FAERS Safety Report 6597178 (Version 1)
Quarter: 2020Q3

REPORT INFORMATION
  Report Type: Report from Study
  Country: US (occurrence: US)
  Receive Date: 20080328
  Receipt Date: 20080328
  Transmission Date: 20201105
  Serious: Yes (Other)
  Sender: FDA-Public Use
  Company Number: US-ROCHE-553760

PATIENT
  Age: 70 Year
  Sex: Female

DRUGS (2)
  1. IBANDRONIC ACID. [Suspect]
     Active Substance: IBANDRONIC ACID
     Indication: OSTEOPOROSIS
     Dosage: RECEIVED ^ON AND OFF^ FOR A COUPLE OF YEARS.
     Route: 048
     Dates: end: 200710
  2. IBANDRONIC ACID. [Suspect]
     Active Substance: IBANDRONIC ACID
     Route: 065
     Dates: start: 200801

REACTIONS (1)
  - Bone lesion excision [Unknown]

NARRATIVE: CASE EVENT DATE: 20080228
